FAERS Safety Report 25035562 (Version 1)
Quarter: 2025Q1

REPORT INFORMATION
  Report Type: Other
  Country: CN (occurrence: CN)
  Receive Date: 20250304
  Receipt Date: 20250304
  Transmission Date: 20250408
  Serious: Yes (Other)
  Sender: QILU PHARMACEUTICAL (HAINAN) CO., LTD.
  Company Number: CN-QILU PHARMACEUTICAL (HAINAN) CO.  LTD.-QLH-000048-2025

PATIENT
  Age: 73 Year
  Sex: Male
  Weight: 81.2 kg

DRUGS (5)
  1. OXALIPLATIN [Suspect]
     Active Substance: OXALIPLATIN
     Indication: Gastric cancer
     Dosage: 200 MG PER EVERY 3 WEEKS
     Route: 041
     Dates: start: 20250114, end: 20250114
  2. SINTILIMAB [Suspect]
     Active Substance: SINTILIMAB
     Indication: Gastric cancer
     Dosage: 200 MG PER EVERY 3 WEEKS
     Route: 041
     Dates: start: 20250114, end: 20250114
  3. INVESTIGATIONAL PRODUCT [Suspect]
     Active Substance: INVESTIGATIONAL PRODUCT
     Indication: Gastric cancer
     Dosage: 60 MG TWICE A DAY FROM DAY 1 TO DAY 14
     Route: 048
     Dates: start: 20250114, end: 20250127
  4. SODIUM CHLORIDE [Concomitant]
     Active Substance: SODIUM CHLORIDE
     Indication: Gastric cancer
     Dosage: 100 ML PER EVERY 3 WEEKS
     Route: 041
     Dates: start: 20250114, end: 20250114
  5. DEXTROSE [Concomitant]
     Active Substance: DEXTROSE MONOHYDRATE
     Indication: Gastric cancer
     Dosage: 250 ML PER EVERY 3 WEEKS
     Route: 041
     Dates: start: 20250114, end: 20250114

REACTIONS (3)
  - Myocarditis [Recovered/Resolved]
  - Hepatic enzyme increased [Recovered/Resolved]
  - Off label use [Recovered/Resolved]

NARRATIVE: CASE EVENT DATE: 20250114
